FAERS Safety Report 8267328-9 (Version None)
Quarter: 2012Q2

REPORT INFORMATION
  Report Type: 
  Country: None (occurrence: None)
  Receive Date: 20120405
  Receipt Date: 20120405
  Transmission Date: 20120825
  Serious: Yes (Death, Hospitalization)
  Sender: FDA-Public Use
  Company Number: None

PATIENT
  Age: 54 Year
  Sex: Female
  Weight: 128 kg

DRUGS (10)
  1. PROAIR HFA [Concomitant]
  2. HUMALOG [Concomitant]
  3. NASONEX [Concomitant]
  4. LANTUS [Concomitant]
  5. OMEPRAZOLE [Concomitant]
  6. ZOLOFT [Concomitant]
  7. LISINOPRIL [Suspect]
     Indication: HYPERTENSION
     Dosage: PO RECENT
  8. PREMARIN [Concomitant]
  9. NORVASC [Concomitant]
  10. COUMADIN [Concomitant]

REACTIONS (3)
  - ANGIOEDEMA [None]
  - CARDIO-RESPIRATORY ARREST [None]
  - HYPOXIC-ISCHAEMIC ENCEPHALOPATHY [None]
